FAERS Safety Report 7278929-9 (Version None)
Quarter: 2011Q1

REPORT INFORMATION
  Report Type: 
  Country: None (occurrence: None)
  Receive Date: 20110207
  Receipt Date: 20110125
  Transmission Date: 20110831
  Serious: Yes (Hospitalization)
  Sender: FDA-Public Use
  Company Number: PHHY2011US00722

PATIENT
  Sex: Male
  Weight: 104 kg

DRUGS (5)
  1. ANTINEOPLASTIC AGENTS [Concomitant]
  2. DIURETICS [Concomitant]
  3. EXJADE [Suspect]
     Indication: LYMPHOPROLIFERATIVE DISORDER
  4. EXJADE [Suspect]
     Indication: HAEMOCHROMATOSIS
  5. EXJADE [Suspect]
     Indication: IRON METABOLISM DISORDER
     Dosage: 2000 MG, QD
     Route: 048

REACTIONS (2)
  - PLEURAL EFFUSION [None]
  - DYSPNOEA [None]
